FAERS Safety Report 13783210 (Version 2)
Quarter: 2017Q3

REPORT INFORMATION
  Report Type: Spontaneous
  Country: US (occurrence: US)
  Receive Date: 20170724
  Receipt Date: 20170814
  Transmission Date: 20171127
  Serious: Yes (Other)
  Sender: FDA-Public Use
  Company Number: US-SA-2017SA126955

PATIENT
  Sex: Male

DRUGS (1)
  1. DULCOLAX NOS [Suspect]
     Active Substance: BISACODYL OR DOCUSATE SODIUM
     Route: 065
     Dates: start: 20170707

REACTIONS (5)
  - Discomfort [Unknown]
  - Constipation [Unknown]
  - Urinary retention [Unknown]
  - Drug ineffective [Unknown]
  - Pain [Unknown]
